FAERS Safety Report 9137452 (Version 3)
Quarter: 2013Q3

REPORT INFORMATION
  Report Type: Spontaneous
  Country: IT (occurrence: IT)
  Receive Date: 20130304
  Receipt Date: 20130813
  Transmission Date: 20140515
  Serious: Yes (Hospitalization, Disabling)
  Sender: FDA-Public Use
  Company Number: IT-BAYER-2013-026454

PATIENT
  Age: 28 Year
  Sex: Female

DRUGS (1)
  1. YASMIN [Suspect]
     Indication: POLYCYSTIC OVARIES
     Dosage: UNK
     Dates: start: 20110101, end: 20110417

REACTIONS (8)
  - Myocardial ischaemia [Unknown]
  - Acute myocardial infarction [Unknown]
  - Artery dissection [Unknown]
  - Coronary artery occlusion [Unknown]
  - Protein S deficiency [None]
  - Polycystic ovaries [Unknown]
  - Infertility [Unknown]
  - Off label use [None]
